FAERS Safety Report 17928623 (Version 1)
Quarter: 2020Q2

REPORT INFORMATION
  Report Type: Spontaneous
  Country: US (occurrence: US)
  Receive Date: 20200622
  Receipt Date: 20200622
  Transmission Date: 20200714
  Serious: Yes (Hospitalization)
  Sender: FDA-Public Use
  Company Number: None

PATIENT
  Age: 64 Year
  Sex: Male
  Weight: 88.9 kg

DRUGS (2)
  1. OXYCODONE (OXYCODONE HCL 10MG TAB) [Suspect]
     Active Substance: OXYCODONE HYDROCHLORIDE
     Indication: PAIN
     Route: 048
     Dates: start: 20200108, end: 20200114
  2. OXYCODONE (OXYCODONE HCL 5MG TAB) [Suspect]
     Active Substance: OXYCODONE HYDROCHLORIDE
     Indication: PAIN
     Route: 048
     Dates: start: 20200108, end: 20200114

REACTIONS (4)
  - Dizziness [None]
  - Hallucination [None]
  - Nausea [None]
  - Orthostatic hypotension [None]

NARRATIVE: CASE EVENT DATE: 20200111
